FAERS Safety Report 4795709-4 (Version None)
Quarter: 2005Q4

REPORT INFORMATION
  Report Type: 
  Country: None (occurrence: None)
  Receive Date: 20051006
  Receipt Date: 20051006
  Transmission Date: 20060501
  Serious: Yes (Life-Threatening)
  Sender: FDA-Public Use
  Company Number: None

PATIENT
  Age: 45 Year
  Sex: Male
  Weight: 51 kg

DRUGS (6)
  1. PACLITAXEL [Suspect]
     Indication: NON-SMALL CELL LUNG CANCER
     Dosage: 200MG/M2-308 MG EVERY 21 DAYS IV DRIP
     Route: 041
     Dates: start: 20050118, end: 20050118
  2. DEXAMETHASONE [Concomitant]
  3. DIPHENHYDRAMINE HCL [Concomitant]
  4. RANITIDINE [Concomitant]
  5. PALONOSETRON [Concomitant]
  6. CARBOPLATIN [Concomitant]

REACTIONS (1)
  - DRUG HYPERSENSITIVITY [None]
